FAERS Safety Report 5364441-0 (Version None)
Quarter: 2007Q2

REPORT INFORMATION
  Report Type: 
  Country: None (occurrence: None)
  Receive Date: 20070530
  Receipt Date: 20070105
  Transmission Date: 20071010
  Serious: No
  Sender: FDA-Public Use
  Company Number: 2007PV027972

PATIENT
  Age: 62 Year
  Sex: Male

DRUGS (4)
  1. BYETTA [Suspect]
     Indication: DIABETES MELLITUS NON-INSULIN-DEPENDENT
     Dosage: 10 MCG;QAM;SC   20 MCG;QPM;SC   10 MCG;BID;SC
     Route: 058
     Dates: start: 20060101, end: 20060901
  2. BYETTA [Suspect]
     Indication: DIABETES MELLITUS NON-INSULIN-DEPENDENT
     Dosage: 10 MCG;QAM;SC   20 MCG;QPM;SC   10 MCG;BID;SC
     Route: 058
     Dates: start: 20060901
  3. BYETTA [Suspect]
     Indication: DIABETES MELLITUS NON-INSULIN-DEPENDENT
     Dosage: 10 MCG;QAM;SC   20 MCG;QPM;SC   10 MCG;BID;SC
     Route: 058
     Dates: start: 20060901
  4. GLUCOPHAGE [Concomitant]

REACTIONS (3)
  - EARLY SATIETY [None]
  - HUNGER [None]
  - WEIGHT DECREASED [None]
